APPROVED DRUG PRODUCT: KENALOG-80
Active Ingredient: TRIAMCINOLONE ACETONIDE
Strength: 80MG/ML
Dosage Form/Route: INJECTABLE;INJECTION
Application: N014901 | Product #002
Applicant: APOTHECON INC DIV BRISTOL MYERS SQUIBB
Approved: Apr 12, 2019 | RLD: Yes | RS: Yes | Type: RX